FAERS Safety Report 6735943-7 (Version None)
Quarter: 2010Q2

REPORT INFORMATION
  Report Type: 
  Country: None (occurrence: None)
  Receive Date: 20100521
  Receipt Date: 20100518
  Transmission Date: 20101027
  Serious: Yes (Life-Threatening)
  Sender: FDA-Public Use
  Company Number: B0652874A

PATIENT
  Sex: Male
  Weight: 110 kg

DRUGS (5)
  1. ELTROMBOPAG [Suspect]
     Indication: IDIOPATHIC THROMBOCYTOPENIC PURPURA
     Dosage: 75MG PER DAY
     Route: 065
     Dates: start: 20081121, end: 20100314
  2. OMEPRAZOLE [Concomitant]
     Indication: GASTRITIS
     Dosage: 20MG TWICE PER DAY
     Route: 048
     Dates: start: 20060601
  3. FUROSEMIDE [Concomitant]
     Indication: LYMPHOEDEMA
     Dosage: 40MG PER DAY
     Route: 048
     Dates: start: 20070101
  4. ALOPURINOL [Concomitant]
     Indication: ARTHROPATHY
     Dosage: 300MG PER DAY
     Route: 048
     Dates: start: 20070310
  5. FENTANILO [Concomitant]
     Indication: OSTEOARTHRITIS
     Route: 058
     Dates: start: 20070101

REACTIONS (2)
  - ACUTE MYOCARDIAL INFARCTION [None]
  - CHEST PAIN [None]
